FAERS Safety Report 6948964-6 (Version None)
Quarter: 2010Q3

REPORT INFORMATION
  Report Type: 
  Country: None (occurrence: None)
  Receive Date: 20100828
  Receipt Date: 20091124
  Transmission Date: 20110219
  Serious: No
  Sender: FDA-Public Use
  Company Number: US-ABBOTT-09P-163-0611318-00

PATIENT
  Age: 60 Year
  Sex: Female
  Weight: 63.56 kg

DRUGS (4)
  1. NIASPAN [Suspect]
     Indication: BLOOD CHOLESTEROL INCREASED
     Dates: start: 20091124, end: 20091124
  2. COZAAR [Concomitant]
     Indication: HYPERTENSION
  3. MULTI-VITAMIN [Concomitant]
     Indication: PRODUCT USED FOR UNKNOWN INDICATION
  4. ASCORBIC ACID [Concomitant]
     Indication: PRODUCT USED FOR UNKNOWN INDICATION

REACTIONS (6)
  - ACNE [None]
  - ERYTHEMA [None]
  - FEELING HOT [None]
  - FLUSHING [None]
  - PRURITUS [None]
  - URTICARIA [None]
